FAERS Safety Report 14673509 (Version 3)
Quarter: 2018Q2

REPORT INFORMATION
  Report Type: Report from Study
  Country: US (occurrence: US)
  Receive Date: 20180323
  Receipt Date: 20180626
  Transmission Date: 20180711
  Serious: Yes (Hospitalization, Other)
  Sender: FDA-Public Use
  Company Number: US-PFIZER INC-2018090049

PATIENT
  Age: 83 Year
  Sex: Female

DRUGS (1)
  1. IBRANCE [Suspect]
     Active Substance: PALBOCICLIB
     Indication: BREAST CANCER
     Dosage: 75 MG, CYCLIC (DAILY/3 WEEKS ON 1 WEEK OFF)
     Route: 048
     Dates: start: 20180227, end: 20180311

REACTIONS (5)
  - Gait inability [Unknown]
  - White blood cell count decreased [Recovered/Resolved]
  - Asthenia [Unknown]
  - Arthralgia [Unknown]
  - Dizziness [Unknown]

NARRATIVE: CASE EVENT DATE: 2018
